FAERS Safety Report 9315963 (Version 5)
Quarter: 2014Q1

REPORT INFORMATION
  Report Type: Spontaneous
  Country: US (occurrence: US)
  Receive Date: 20130530
  Receipt Date: 20140214
  Transmission Date: 20141002
  Serious: Yes (Death, Hospitalization, Other)
  Sender: FDA-Public Use
  Company Number: US-BIOGENIDEC-2013BI044788

PATIENT
  Sex: Female

DRUGS (2)
  1. AVONEX [Suspect]
     Indication: MULTIPLE SCLEROSIS
     Route: 030
     Dates: start: 20120713, end: 20121023
  2. AVONEX [Suspect]
     Indication: MULTIPLE SCLEROSIS
     Route: 030
     Dates: start: 20121024

REACTIONS (6)
  - Pancreatic carcinoma [Fatal]
  - Escherichia infection [Fatal]
  - Neoplasm malignant [Unknown]
  - Exploratory operation [Recovered/Resolved]
  - Cystitis escherichia [Unknown]
  - Multiple sclerosis [Recovered/Resolved]
